FAERS Safety Report 4271391-X (Version None)
Quarter: 2004Q1

REPORT INFORMATION
  Report Type: 
  Country: None (occurrence: None)
  Receive Date: 20040114
  Receipt Date: 20040114
  Transmission Date: 20041129
  Serious: Yes (Other)
  Sender: FDA-Public Use
  Company Number: None

PATIENT
  Age: 54 Year
  Sex: Male
  Weight: 67.4 kg

DRUGS (1)
  1. RITUXIMAB [Suspect]

REACTIONS (4)
  - CHILLS [None]
  - HYPOTENSION [None]
  - LACRIMATION INCREASED [None]
  - PRURITUS [None]
